FAERS Safety Report 4658889-7 (Version None)
Quarter: 2005Q2

REPORT INFORMATION
  Report Type: 
  Country: None (occurrence: None)
  Receive Date: 20050509
  Receipt Date: 20050429
  Transmission Date: 20051028
  Serious: Yes (Hospitalization)
  Sender: FDA-Public Use
  Company Number: 2005CG00849

PATIENT
  Age: 57 Year
  Sex: Female

DRUGS (1)
  1. XYLOCAINE [Suspect]
     Indication: LOCAL ANAESTHESIA
     Dosage: 10 MG ONCE SQ
     Route: 058

REACTIONS (9)
  - BRADYCARDIA [None]
  - DYSGEUSIA [None]
  - HYPOTENSION [None]
  - LARYNGOSPASM [None]
  - MALAISE [None]
  - OEDEMA [None]
  - OXYGEN SATURATION DECREASED [None]
  - RESPIRATORY DISORDER [None]
  - THROAT IRRITATION [None]
